FAERS Safety Report 8808538 (Version 1)
Quarter: 2012Q4

REPORT INFORMATION
  Report Type: Spontaneous
  Country: US (occurrence: None)
  Receive Date: 20120919
  Receipt Date: 20120919
  Transmission Date: 20130627
  Serious: Yes (Death)
  Sender: FDA-Public Use
  Company Number: 2012ST000662

PATIENT
  Age: 53 Year
  Sex: Male

DRUGS (3)
  1. MATULANE CAPSULES [Suspect]
     Indication: HODGKIN^S DISEASE
     Route: 048
     Dates: start: 20120501, end: 20120827
  2. MATULANE CAPSULES [Suspect]
     Indication: HODGKIN^S DISEASE
     Route: 048
     Dates: start: 20120501, end: 20120827
  3. BLEOMYCIN [Suspect]
     Indication: HODGKIN^S DISEASE

REACTIONS (2)
  - Acute lung injury [None]
  - Lung infiltration [None]
